FAERS Safety Report 10994515 (Version 3)
Quarter: 2015Q2

REPORT INFORMATION
  Report Type: Report from Study
  Country: KR (occurrence: KR)
  Receive Date: 20150407
  Receipt Date: 20150427
  Transmission Date: 20150821
  Serious: Yes (Hospitalization)
  Sender: FDA-Public Use
  Company Number: KR-009507513-1504KOR000020

PATIENT
  Age: 66 Year
  Sex: Male
  Weight: 52.2 kg

DRUGS (5)
  1. PEMBROLIZUMAB. [Suspect]
     Active Substance: PEMBROLIZUMAB
     Dosage: 200 MG, Q3W
     Route: 042
     Dates: start: 20150324, end: 20150324
  2. PEMBROLIZUMAB. [Suspect]
     Active Substance: PEMBROLIZUMAB
     Indication: HEAD AND NECK CANCER
     Dosage: 200 MG, Q3W
     Route: 042
     Dates: start: 20141230, end: 20141230
  3. LACTICARE ZEMAGIS [Concomitant]
     Indication: DERMATITIS EXFOLIATIVE
     Dosage: TOTAL DAILY DOSE: 3 G
     Route: 003
     Dates: start: 20150210
  4. DICAMAX D [Concomitant]
     Indication: THYROIDECTOMY
     Dosage: 2 TABLETS, QD
     Route: 048
     Dates: start: 20140714
  5. SYNTHYROXINE [Concomitant]
     Indication: THYROIDECTOMY
     Dosage: 100 MICROGRAM, QD
     Route: 048
     Dates: start: 20141117

REACTIONS (1)
  - Haemorrhage [Recovered/Resolved]

NARRATIVE: CASE EVENT DATE: 20150327
